FAERS Safety Report 25846245 (Version 1)
Quarter: 2025Q3

REPORT INFORMATION
  Report Type: Spontaneous
  Country: US (occurrence: US)
  Receive Date: 20250925
  Receipt Date: 20250925
  Transmission Date: 20251021
  Serious: No
  Sender: ROCHE
  Company Number: US-ROCHE-10000395350

PATIENT
  Age: 4 Year
  Sex: Female

DRUGS (9)
  1. RITUXIMAB [Suspect]
     Active Substance: RITUXIMAB
     Indication: Epstein-Barr viraemia
     Route: 065
  2. BORTEZOMIB [Concomitant]
     Active Substance: BORTEZOMIB
  3. GANCICLOVIR [Concomitant]
     Active Substance: GANCICLOVIR
  4. PREDNISONE [Concomitant]
     Active Substance: PREDNISONE
  5. DEXAMETHASONE [Concomitant]
     Active Substance: DEXAMETHASONE
  6. METHOTREXATE [Concomitant]
     Active Substance: METHOTREXATE
  7. IFOSFAMIDE [Concomitant]
     Active Substance: IFOSFAMIDE
  8. ETOPOSIDE [Concomitant]
     Active Substance: ETOPOSIDE
  9. ASPARAGINASE [Concomitant]
     Active Substance: ASPARAGINASE

REACTIONS (2)
  - Drug ineffective [Unknown]
  - No adverse event [Unknown]
